FAERS Safety Report 4270295-6 (Version None)
Quarter: 2004Q1

REPORT INFORMATION
  Report Type: 
  Country: None (occurrence: None)
  Receive Date: 20040113
  Receipt Date: 20040113
  Transmission Date: 20041129
  Serious: Yes (Other)
  Sender: FDA-Public Use
  Company Number: None

PATIENT
  Sex: Female
  Weight: 80.7403 kg

DRUGS (2)
  1. FLEXERIL [Suspect]
     Indication: FIBROMYALGIA
     Dosage: 10 MG AT PO MGNT
     Route: 048
  2. FLEXERIL [Suspect]
     Indication: TENSION HEADACHE
     Dosage: 10 MG AT PO MGNT
     Route: 048

REACTIONS (4)
  - MALAISE [None]
  - NAUSEA [None]
  - PHARMACEUTICAL PRODUCT COMPLAINT [None]
  - VOMITING [None]
